FAERS Safety Report 4902879-3 (Version None)
Quarter: 2006Q1

REPORT INFORMATION
  Report Type: 
  Country: None (occurrence: None)
  Receive Date: 20060207
  Receipt Date: 20051109
  Transmission Date: 20060701
  Serious: Yes (Other)
  Sender: FDA-Public Use
  Company Number: GB-BOEHRINGER INGELHEIM PHARMACEUTICALS, INC.-2005-UK-02300UK

PATIENT
  Sex: Female

DRUGS (9)
  1. CATAPRES [Suspect]
     Indication: MENOPAUSAL SYMPTOMS
     Route: 048
  2. PROPRANOLOL [Concomitant]
  3. DIAZEPAM [Concomitant]
  4. MIRTAZAPINE [Concomitant]
  5. THIAMINE [Concomitant]
  6. TRAMADOL [Concomitant]
  7. DOCUSATE [Concomitant]
  8. DICYCLOVERINE [Concomitant]
  9. SODIUM PICOSULPHATE [Concomitant]

REACTIONS (1)
  - CONVULSION [None]
